FAERS Safety Report 5786011-2 (Version None)
Quarter: 2008Q2

REPORT INFORMATION
  Report Type: 
  Country: None (occurrence: None)
  Receive Date: 20080624
  Receipt Date: 20080620
  Transmission Date: 20081010
  Serious: Yes (Death, Other)
  Sender: FDA-Public Use
  Company Number: PHHY2008JP08010

PATIENT
  Age: 72 Year
  Sex: Male

DRUGS (5)
  1. VOLTAREN [Suspect]
     Indication: LUNG NEOPLASM MALIGNANT
     Dosage: UNK
     Route: 048
  2. METHOTREXATE [Suspect]
     Indication: METASTASES TO MENINGES
     Dosage: 15 MG TWICE A WEEK
     Route: 037
  3. METHOTREXATE [Suspect]
     Dosage: 5 MG ONCE IN A WEEK
  4. LOXOPROFEN [Suspect]
     Route: 048
  5. SULFAMETHOXAZOLE AND TRIMETHOPRIM [Suspect]
     Dosage: 1 DF, UNK
     Route: 048

REACTIONS (4)
  - DISEASE PROGRESSION [None]
  - DRUG INTERACTION [None]
  - HYPOALBUMINAEMIA [None]
  - PANCYTOPENIA [None]
